FAERS Safety Report 12216192 (Version 1)
Quarter: 2016Q1

REPORT INFORMATION
  Report Type: Spontaneous
  Country: US (occurrence: US)
  Receive Date: 20160329
  Receipt Date: 20160329
  Transmission Date: 20160526
  Serious: Yes (Hospitalization)
  Sender: FDA-Public Use
  Company Number: US-BEH-2016060359

PATIENT
  Sex: Female
  Weight: 119 kg

DRUGS (19)
  1. XANAX [Concomitant]
     Active Substance: ALPRAZOLAM
  2. SYNTHROID [Concomitant]
     Active Substance: LEVOTHYROXINE SODIUM
  3. DALIRESP [Concomitant]
     Active Substance: ROFLUMILAST
  4. ZITHROMAX [Concomitant]
     Active Substance: AZITHROMYCIN DIHYDRATE
  5. ZANTAC [Concomitant]
     Active Substance: RANITIDINE HYDROCHLORIDE
  6. VENTOLIN [Concomitant]
     Active Substance: ALBUTEROL SULFATE
  7. ADVAIR HFA [Concomitant]
     Active Substance: FLUTICASONE PROPIONATE\SALMETEROL XINAFOATE
  8. TOPROL XL [Concomitant]
     Active Substance: METOPROLOL SUCCINATE
  9. ZYRTEC [Concomitant]
     Active Substance: CETIRIZINE HYDROCHLORIDE
  10. GENTAMICIN. [Concomitant]
     Active Substance: GENTAMICIN
  11. DIPHENHYDRAMINE. [Concomitant]
     Active Substance: DIPHENHYDRAMINE
  12. EPIPEN [Concomitant]
     Active Substance: EPINEPHRINE
  13. LMX [Concomitant]
     Active Substance: LIDOCAINE
  14. ACETAMINOPHEN. [Concomitant]
     Active Substance: ACETAMINOPHEN
  15. CELEXA [Concomitant]
     Active Substance: CITALOPRAM HYDROBROMIDE
  16. IPRATROPIUM-ALBUTEROL [Concomitant]
     Active Substance: ALBUTEROL\IPRATROPIUM
  17. HIZENTRA [Suspect]
     Active Substance: HUMAN IMMUNOGLOBULIN G
     Indication: IMMUNODEFICIENCY COMMON VARIABLE
     Route: 058
  18. PREDNISONE. [Concomitant]
     Active Substance: PREDNISONE
  19. SPIRIVA [Concomitant]
     Active Substance: TIOTROPIUM BROMIDE MONOHYDRATE

REACTIONS (1)
  - Pneumonia [Unknown]
